FAERS Safety Report 15260934 (Version 1)
Quarter: 2018Q3

REPORT INFORMATION
  Report Type: Spontaneous
  Country: US (occurrence: US)
  Receive Date: 20180719
  Receipt Date: 20180719
  Transmission Date: 20181010
  Serious: Yes (Life-Threatening, Hospitalization, Disabling)
  Sender: FDA-Public Use
  Company Number: None

PATIENT
  Age: 42 Year
  Sex: Male
  Weight: 81 kg

DRUGS (4)
  1. DOTAREM [Suspect]
     Active Substance: GADOTERATE MEGLUMINE
     Indication: SCAN WITH CONTRAST
     Dosage: INTRAVENOUS (NOT OTHERWISE SPECIFIED)
     Route: 042
     Dates: start: 20180102, end: 20180102
  2. GADOLINUM [Concomitant]
     Active Substance: GADOLINIUM
  3. DOTAREM [Suspect]
     Active Substance: GADOTERATE MEGLUMINE
     Indication: NUCLEAR MAGNETIC RESONANCE IMAGING
     Dosage: INTRAVENOUS (NOT OTHERWISE SPECIFIED)
     Route: 042
     Dates: start: 20180102, end: 20180102
  4. IRON [Concomitant]
     Active Substance: IRON

REACTIONS (29)
  - Myalgia [None]
  - Flatulence [None]
  - Heart rate increased [None]
  - Fatigue [None]
  - Dry skin [None]
  - Bone pain [None]
  - Arthropathy [None]
  - Skin plaque [None]
  - Muscular weakness [None]
  - Eyelid ptosis [None]
  - Eye pain [None]
  - Urticaria [None]
  - Feeling abnormal [None]
  - Skin disorder [None]
  - Renal cyst [None]
  - Dry eye [None]
  - Muscle tightness [None]
  - Dyspepsia [None]
  - Middle insomnia [None]
  - Vision blurred [None]
  - Skin discolouration [None]
  - Rash [None]
  - Muscle twitching [None]
  - Arthralgia [None]
  - Hepatic cyst [None]
  - Hypoaesthesia [None]
  - Alopecia [None]
  - Chondropathy [None]
  - Paraesthesia [None]

NARRATIVE: CASE EVENT DATE: 20180102
